FAERS Safety Report 19123686 (Version 1)
Quarter: 2021Q2

REPORT INFORMATION
  Report Type: Report from Study
  Country: IL (occurrence: IL)
  Receive Date: 20210412
  Receipt Date: 20210412
  Transmission Date: 20210717
  Serious: Yes (Hospitalization)
  Sender: FDA-Public Use
  Company Number: IL-KARYOPHARM-2021KPT000222

PATIENT
  Age: 71 Year
  Sex: Male
  Weight: 92.9 kg

DRUGS (1)
  1. SELINEXOR [Suspect]
     Active Substance: SELINEXOR
     Indication: PANCREATIC CARCINOMA
     Dosage: UNK

REACTIONS (1)
  - Sepsis [Not Recovered/Not Resolved]
